FAERS Safety Report 7720466-9 (Version None)
Quarter: 2011Q3

REPORT INFORMATION
  Report Type: 
  Country: None (occurrence: None)
  Receive Date: 20110830
  Receipt Date: 20110830
  Transmission Date: 20111222
  Serious: Yes (Congenital Anomaly)
  Sender: FDA-Public Use
  Company Number: None

PATIENT
  Sex: Female
  Weight: 3.2 kg

DRUGS (2)
  1. ZOLOFT [Suspect]
     Dosage: 100 MG ONCE DAILY 047
     Route: 048
     Dates: start: 20050101, end: 20070103
  2. ZOLOFT [Suspect]
     Dosage: 100 MG ONCE DAILY 047
     Route: 048
     Dates: start: 20070416

REACTIONS (2)
  - NOONAN SYNDROME [None]
  - MATERNAL DRUGS AFFECTING FOETUS [None]
